FAERS Safety Report 5187713-1 (Version None)
Quarter: 2006Q4

REPORT INFORMATION
  Report Type: 
  Country: None (occurrence: None)
  Receive Date: 20061214
  Receipt Date: 20060907
  Transmission Date: 20070319
  Serious: Yes (Disabling)
  Sender: FDA-Public Use
  Company Number: 06-0111TG

PATIENT
  Age: 57 Year
  Sex: Male
  Weight: 127.0072 kg

DRUGS (5)
  1. TRIGLIDE [Suspect]
     Dosage: PO
     Route: 048
     Dates: start: 20060824, end: 20060901
  2. TYLENOL [Concomitant]
  3. IMODIUM [Concomitant]
  4. GAS-X [Concomitant]
  5. NEXIUM [Concomitant]

REACTIONS (9)
  - CHROMATURIA [None]
  - DIARRHOEA [None]
  - DYSPHONIA [None]
  - ERUCTATION [None]
  - FLATULENCE [None]
  - JAUNDICE [None]
  - MYALGIA [None]
  - OEDEMA PERIPHERAL [None]
  - PAIN IN EXTREMITY [None]
